FAERS Safety Report 25014458 (Version 1)
Quarter: 2025Q1

REPORT INFORMATION
  Report Type: Report from Study
  Country: US (occurrence: US)
  Receive Date: 20250226
  Receipt Date: 20250226
  Transmission Date: 20250408
  Serious: Yes (Other)
  Sender: ABBVIE
  Company Number: US-ABBVIE-6124436

PATIENT
  Sex: Female
  Weight: 76.203 kg

DRUGS (1)
  1. HUMIRA [Suspect]
     Active Substance: ADALIMUMAB
     Indication: Rheumatoid arthritis
     Dosage: FORM STRENGTH: 40 MILLIGRAM?ONGOING
     Route: 058
     Dates: start: 20241007

REACTIONS (1)
  - Lumbar spinal stenosis [Recovering/Resolving]
